FAERS Safety Report 17109873 (Version 1)
Quarter: 2019Q4

REPORT INFORMATION
  Report Type: Spontaneous
  Country: SE (occurrence: SE)
  Receive Date: 20191204
  Receipt Date: 20191204
  Transmission Date: 20200122
  Serious: Yes (Other)
  Sender: FDA-Public Use
  Company Number: SE-TEVA-2019-SE-1145355

PATIENT
  Age: 92 Year
  Sex: Female

DRUGS (2)
  1. MIRTAZAPIN ACTAVIS 15 MG FILMDRAGERAD TABLETT [Suspect]
     Active Substance: MIRTAZAPINE
     Indication: DEPRESSION
     Dosage: 15.0 MG?1 KL 20 TV
     Dates: start: 20191016, end: 20191023
  2. PREGABALIN KRKA 25 MG KAPSEL, HARD [Suspect]
     Active Substance: PREGABALIN
     Indication: NEURALGIA
     Dosage: 1 CAPSULE AT 8 P.M. FOR 2 DAYS 1 CAPSULE AT 8 AND 8 PM FOR 3 DAYS 1 CAPSULE AT 8 +2 CAPSULES AT 8 PM
     Dates: start: 20191015, end: 20191023

REACTIONS (1)
  - Hallucination, visual [Recovering/Resolving]

NARRATIVE: CASE EVENT DATE: 20191018
